FAERS Safety Report 18920645 (Version 1)
Quarter: 2021Q1

REPORT INFORMATION
  Report Type: Spontaneous
  Country: DE (occurrence: DE)
  Receive Date: 20210222
  Receipt Date: 20210222
  Transmission Date: 20210420
  Serious: Yes (Life-Threatening, Hospitalization, Other)
  Sender: FDA-Public Use
  Company Number: DE-HISUN PHARMACEUTICALS-2107095

PATIENT
  Age: 61 Year
  Sex: Male

DRUGS (7)
  1. SULFAMETHOXAZOLE AND TRIMETHOPRIM [Concomitant]
     Active Substance: SULFAMETHOXAZOLE\TRIMETHOPRIM
  2. PIPERACILLIN AND TAZOBACTAM [Concomitant]
     Active Substance: PIPERACILLIN SODIUM\TAZOBACTAM SODIUM
  3. VANCOMYCIN HYDROCHLORIDE. [Concomitant]
     Active Substance: VANCOMYCIN HYDROCHLORIDE
  4. VORICONAZOLE. [Concomitant]
     Active Substance: VORICONAZOLE
  5. CLADRIBINE. [Suspect]
     Active Substance: CLADRIBINE
     Dates: start: 20190124, end: 20190128
  6. MEROPENEM. [Concomitant]
     Active Substance: MEROPENEM
  7. CLARITHROMYCIN. [Concomitant]
     Active Substance: CLARITHROMYCIN

REACTIONS (4)
  - Inflammatory marker increased [Recovered/Resolved]
  - Condition aggravated [Recovered/Resolved]
  - Hypersensitivity vasculitis [Recovered/Resolved]
  - Neutropenia [Recovered/Resolved]
